FAERS Safety Report 9241945 (Version 1)
Quarter: 2013Q2

REPORT INFORMATION
  Report Type: Spontaneous
  Country: CA (occurrence: CA)
  Receive Date: 20130419
  Receipt Date: 20130419
  Transmission Date: 20140414
  Serious: Yes (Hospitalization)
  Sender: FDA-Public Use
  Company Number: CA-ROCHE-1212183

PATIENT
  Age: 36 Year
  Sex: Male

DRUGS (2)
  1. RITUXIMAB [Suspect]
     Indication: AUTOIMMUNE THROMBOCYTOPENIA
     Dosage: FOR 4 WEEKS
     Route: 042
  2. ROMIPLOSTIM [Concomitant]

REACTIONS (4)
  - Neutropenia [Unknown]
  - Mouth ulceration [Unknown]
  - Anosmia [Unknown]
  - Paraesthesia [Unknown]
